FAERS Safety Report 14237140 (Version 6)
Quarter: 2018Q2

REPORT INFORMATION
  Report Type: Report from Study
  Country: FR (occurrence: FR)
  Receive Date: 20171129
  Receipt Date: 20180621
  Transmission Date: 20180711
  Serious: Yes (Hospitalization, Other)
  Sender: FDA-Public Use
  Company Number: FR-INCYTE CORPORATION-2017IN010150

PATIENT

DRUGS (13)
  1. VIDAZA [Suspect]
     Active Substance: AZACITIDINE
     Dosage: (7 DAYS PER MONTH)
     Route: 042
     Dates: start: 20171012
  2. VIDAZA [Suspect]
     Active Substance: AZACITIDINE
     Dosage: 75 MG/M2, (7 DAYS PER MONTH)
     Route: 042
     Dates: start: 20161207, end: 20170801
  3. OXYCONTIN [Concomitant]
     Active Substance: OXYCODONE HYDROCHLORIDE
     Indication: BONE PAIN
     Dosage: UNK
     Route: 065
  4. VIDAZA [Suspect]
     Active Substance: AZACITIDINE
     Indication: ACUTE MYELOID LEUKAEMIA
     Dosage: 75 MG/M2, (7 DAYS PER MONTH)
     Route: 042
     Dates: start: 20161207, end: 201708
  5. WYSTAMM [Concomitant]
     Active Substance: RUPATADINE FUMARATE
     Indication: CUTANEOUS VASCULITIS
     Dosage: UNK
     Route: 065
  6. TRAMADOL. [Concomitant]
     Active Substance: TRAMADOL
     Indication: BONE PAIN
     Dosage: UNK
     Route: 065
  7. JAKAVI [Suspect]
     Active Substance: RUXOLITINIB
     Dosage: 30 MG, UNK
     Route: 048
     Dates: start: 20170928
  8. VIDAZA [Suspect]
     Active Substance: AZACITIDINE
     Dosage: UNK
     Route: 041
  9. OXYNORM [Concomitant]
     Active Substance: OXYCODONE HYDROCHLORIDE
     Indication: BONE PAIN
     Dosage: UNK
     Route: 065
  10. JAKAVI [Suspect]
     Active Substance: RUXOLITINIB
     Indication: MYELOFIBROSIS
     Dosage: 30 MG, QD
     Route: 048
     Dates: start: 20130122, end: 20170801
  11. PARACETAMOL [Concomitant]
     Active Substance: ACETAMINOPHEN
     Indication: BONE PAIN
     Dosage: UNK
     Route: 065
  12. XANAX [Concomitant]
     Active Substance: ALPRAZOLAM
     Indication: PAIN
     Dosage: UNK
     Route: 065
  13. XANAX [Concomitant]
     Active Substance: ALPRAZOLAM
     Indication: DEPRESSION

REACTIONS (12)
  - Psoas abscess [Recovered/Resolved]
  - Intervertebral discitis [Not Recovered/Not Resolved]
  - Intervertebral disc degeneration [Not Recovered/Not Resolved]
  - Orchitis [Not Recovered/Not Resolved]
  - Splenic abscess [Not Recovered/Not Resolved]
  - Weight decreased [Unknown]
  - Hallucination [Unknown]
  - Back pain [Unknown]
  - Acute myeloid leukaemia [Unknown]
  - Psoas abscess [Recovered/Resolved]
  - Staphylococcal sepsis [Recovered/Resolved]
  - Malnutrition [Recovering/Resolving]

NARRATIVE: CASE EVENT DATE: 20161201
